FAERS Safety Report 5333324-4 (Version None)
Quarter: 2007Q2

REPORT INFORMATION
  Report Type: 
  Country: None (occurrence: None)
  Receive Date: 20070524
  Receipt Date: 20070510
  Transmission Date: 20071010
  Serious: Yes (Other)
  Sender: FDA-Public Use
  Company Number: US-AMGEN-KDL213452

PATIENT
  Sex: Female

DRUGS (2)
  1. ENBREL [Suspect]
     Indication: RHEUMATOID ARTHRITIS
     Route: 058
     Dates: start: 20070124
  2. METHOTREXATE [Concomitant]
     Dates: start: 20060101

REACTIONS (5)
  - EYELID OEDEMA [None]
  - HYPERSENSITIVITY [None]
  - INJECTION SITE PAIN [None]
  - LIP SWELLING [None]
  - SWELLING FACE [None]
